FAERS Safety Report 24192146 (Version 1)
Quarter: 2024Q3

REPORT INFORMATION
  Report Type: Spontaneous
  Country: IT (occurrence: IT)
  Receive Date: 20240809
  Receipt Date: 20240809
  Transmission Date: 20241016
  Serious: Yes (Hospitalization, Other)
  Sender: NOVARTIS
  Company Number: None

PATIENT
  Age: 64 Year
  Sex: Male
  Weight: 85 kg

DRUGS (5)
  1. KESIMPTA [Suspect]
     Active Substance: OFATUMUMAB
     Indication: Multiple sclerosis
     Dosage: 20 MG, UNA FIALA DA 20 MG SOTTOCUTE UNA VOLTA AL MESE
     Route: 058
     Dates: start: 20230123, end: 20240520
  2. PREDNISONE [Suspect]
     Active Substance: PREDNISONE
     Indication: Product used for unknown indication
     Dosage: 25 MG, DELTACORTENE 25 MG A SCALARE PER UNA SETTIMANA, TRA FINE DICEMBRE 2023 E INIZIO GENNAIO 2024
     Route: 048
     Dates: start: 202312, end: 202401
  3. METHYLPREDNISOLONE [Suspect]
     Active Substance: METHYLPREDNISOLONE
     Indication: Multiple sclerosis
     Dosage: 500 MG, Q24H (SOLUMEDROL 500 MG IM PER 3 GIORNI POI DELTACORTENE 25 MG A SCALARE PER UNA SETTIMANA,
     Route: 030
     Dates: start: 202312, end: 202401
  4. ESCITALOPRAM [Concomitant]
     Active Substance: ESCITALOPRAM OXALATE
     Indication: Depression
     Dosage: 10 DRP, Q24H
     Route: 048
  5. AMLODIPINE BESYLATE\OLMESARTAN MEDOXOMIL [Concomitant]
     Active Substance: AMLODIPINE BESYLATE\OLMESARTAN MEDOXOMIL
     Indication: Hypertension
     Dosage: 1 DOSAGE FORM, Q24H (BIVIS 20/5 MG 1 CP AL D?)
     Route: 048

REACTIONS (1)
  - Deep vein thrombosis [Not Recovered/Not Resolved]

NARRATIVE: CASE EVENT DATE: 20240205
